FAERS Safety Report 12518031 (Version 2)
Quarter: 2016Q3

REPORT INFORMATION
  Report Type: Spontaneous
  Country: JP (occurrence: JP)
  Receive Date: 20160630
  Receipt Date: 20160809
  Transmission Date: 20161109
  Serious: Yes (Other)
  Sender: FDA-Public Use
  Company Number: JP-PFIZER INC-2016319359

PATIENT
  Age: 75 Year
  Sex: Female

DRUGS (12)
  1. ERYTHROCIN /00020901/ [Concomitant]
     Active Substance: ERYTHROMYCIN ETHYLSUCCINATE
     Dosage: 200 MG, 2X/DAY
     Route: 048
  2. MEDICON /00048102/ [Concomitant]
     Active Substance: DEXTROMETHORPHAN HYDROBROMIDE
     Dosage: 15 MG, 3X/DAY
     Route: 048
  3. TAKEPRON [Concomitant]
     Active Substance: LANSOPRAZOLE
     Dosage: 15 MG, 1X/DAY
     Route: 048
  4. NORVASC [Concomitant]
     Active Substance: AMLODIPINE BESYLATE
     Dosage: 5 MG, 1X/DAY
     Route: 048
  5. RHEUMATREX [Suspect]
     Active Substance: METHOTREXATE SODIUM
     Dosage: 2 MG, 1X/DAY
     Route: 048
     Dates: start: 20160624, end: 20160624
  6. CARDENALIN [Concomitant]
     Active Substance: DOXAZOSIN MESYLATE
     Dosage: 1 MG, 1X/DAY
     Route: 048
  7. RIMATIL [Concomitant]
     Active Substance: BUCILLAMINE
     Indication: ABULIA
  8. RIMATIL [Concomitant]
     Active Substance: BUCILLAMINE
     Indication: PAIN IN EXTREMITY
     Dosage: 100 MG, 2X/DAY
     Route: 048
  9. RHEUMATREX [Suspect]
     Active Substance: METHOTREXATE SODIUM
     Indication: RHEUMATOID FACTOR INCREASED
     Dosage: 2 MG, 2X/DAY
     Route: 048
     Dates: start: 20160623, end: 20160623
  10. MAINTATE [Concomitant]
     Active Substance: BISOPROLOL FUMARATE
     Dosage: 5 MG, 1X/DAY
     Route: 048
  11. RIMATIL [Concomitant]
     Active Substance: BUCILLAMINE
     Indication: MALAISE
  12. MUCODAIN [Concomitant]
     Dosage: 500 MG, 3X/DAY
     Route: 048

REACTIONS (5)
  - Asthenia [Recovered/Resolved]
  - Dysarthria [Recovered/Resolved]
  - Ataxia [Recovered/Resolved]
  - Altered state of consciousness [Recovered/Resolved]
  - Feeling abnormal [Recovered/Resolved]

NARRATIVE: CASE EVENT DATE: 20160625
